FAERS Safety Report 9938361 (Version 1)
Quarter: 2014Q1

REPORT INFORMATION
  Report Type: Report from Study
  Country: US (occurrence: US)
  Receive Date: 20140303
  Receipt Date: 20140303
  Transmission Date: 20141002
  Serious: No
  Sender: FDA-Public Use
  Company Number: US-ABBVIE-13P-163-1032066-00

PATIENT
  Age: 44 Year
  Sex: Male
  Weight: 69.01 kg

DRUGS (2)
  1. HUMIRA [Suspect]
     Indication: ANKYLOSING SPONDYLITIS
     Dates: start: 201209
  2. INDOMETHACIN [Concomitant]
     Indication: ANKYLOSING SPONDYLITIS

REACTIONS (3)
  - Urticaria [Recovered/Resolved]
  - Pruritus [Not Recovered/Not Resolved]
  - Expired drug administered [Recovered/Resolved]
